FAERS Safety Report 15299468 (Version 2)
Quarter: 2018Q4

REPORT INFORMATION
  Report Type: Spontaneous
  Country: FR (occurrence: FR)
  Receive Date: 20180821
  Receipt Date: 20180822
  Transmission Date: 20190204
  Serious: Yes (Hospitalization)
  Sender: FDA-Public Use
  Company Number: FR-TEVA-2018-FR-944264

PATIENT
  Age: 80 Year
  Sex: Female

DRUGS (10)
  1. AERIUS (DESLORATADINE) [Suspect]
     Active Substance: DESLORATADINE
     Indication: RASH PRURITIC
     Dosage: 5 MILLIGRAM DAILY;
     Route: 048
     Dates: start: 20180529, end: 201806
  2. BILASKA 20 MG, COMPRIM? [Suspect]
     Active Substance: BILASTINE
     Indication: RASH PRURITIC
     Dosage: 20 MILLIGRAM DAILY;
     Route: 048
     Dates: start: 20180615
  3. IZALGI 500 MG/25 MG, G?LULE [Suspect]
     Active Substance: ACETAMINOPHEN\OPIUM
     Indication: ANALGESIC INTERVENTION SUPPORTIVE THERAPY
     Dosage: UN SPECIFIED
     Route: 048
     Dates: start: 20180628, end: 201807
  4. DOLIPRANE [Suspect]
     Active Substance: ACETAMINOPHEN
     Indication: ANALGESIC INTERVENTION SUPPORTIVE THERAPY
     Dosage: UNSPECIFIED
     Route: 048
     Dates: start: 20180628, end: 201807
  5. ARCOXIA [Suspect]
     Active Substance: ETORICOXIB
     Indication: OSTEOARTHRITIS
     Dosage: 60 MILLIGRAM DAILY;
     Route: 048
     Dates: start: 20180421, end: 20180426
  6. DOLITABS 500 MG, COMPRIM? ORODISPERSIBLE [Suspect]
     Active Substance: ACETAMINOPHEN
     Indication: ANALGESIC INTERVENTION SUPPORTIVE THERAPY
     Dosage: UNSPECIFIED
     Route: 048
     Dates: start: 20180627, end: 20180627
  7. TETANUS TOXOID ADSORBED (VACCINE) [Suspect]
     Active Substance: CLOSTRIDIUM TETANI TOXOID ANTIGEN (FORMALDEHYDE INACTIVATED)
     Indication: IMMUNISATION
     Route: 065
     Dates: start: 20180629, end: 20180629
  8. PYOSTACINE 500 MG, COMPRIM? PELLICUL? S?CABLE [Suspect]
     Active Substance: PRISTINAMYCIN
     Indication: TOOTH ABSCESS
     Dosage: 2 GRAM DAILY;
     Route: 048
     Dates: start: 20180421, end: 20180426
  9. FUCIDINE (FUSIDIC ACID) [Suspect]
     Active Substance: FUSIDIC ACID
     Indication: SKIN INFECTION
     Dosage: 1000 MILLIGRAM DAILY;
     Route: 048
     Dates: start: 20180629
  10. OMEPRAZOLE. [Suspect]
     Active Substance: OMEPRAZOLE
     Indication: PROPHYLAXIS AGAINST GASTROINTESTINAL ULCER
     Dosage: 20 MILLIGRAM DAILY;
     Route: 048
     Dates: start: 20180421, end: 20180426

REACTIONS (1)
  - Drug reaction with eosinophilia and systemic symptoms [Recovering/Resolving]

NARRATIVE: CASE EVENT DATE: 201807
